FAERS Safety Report 9293184 (Version 1)
Quarter: 2013Q2

REPORT INFORMATION
  Report Type: Spontaneous
  Country: FR (occurrence: FR)
  Receive Date: 20130516
  Receipt Date: 20130516
  Transmission Date: 20140414
  Serious: Yes (Hospitalization)
  Sender: FDA-Public Use
  Company Number: FR-BAXTER-2012BAX012023

PATIENT
  Age: 84 Year
  Sex: Female

DRUGS (10)
  1. KIOVIG, 100 MG/ML, SOLUTION POUR PERFUSION [Suspect]
     Indication: INCLUSION BODY MYOSITIS
     Route: 042
     Dates: start: 20110718, end: 20111223
  2. KIOVIG, 100 MG/ML, SOLUTION POUR PERFUSION [Suspect]
     Indication: OFF LABEL USE
  3. OCTAGAM [Suspect]
     Indication: INCLUSION BODY MYOSITIS
     Route: 042
     Dates: start: 20120123, end: 20120425
  4. ACETYLSALICYLIC ACID [Concomitant]
     Indication: PRODUCT USED FOR UNKNOWN INDICATION
  5. EZETROL [Concomitant]
     Indication: PRODUCT USED FOR UNKNOWN INDICATION
  6. EUPANTOL [Concomitant]
     Indication: PRODUCT USED FOR UNKNOWN INDICATION
  7. BACLOFEN [Concomitant]
     Indication: PRODUCT USED FOR UNKNOWN INDICATION
  8. LEXOMIL [Concomitant]
     Indication: PRODUCT USED FOR UNKNOWN INDICATION
  9. TARDYFERON [Concomitant]
     Indication: PRODUCT USED FOR UNKNOWN INDICATION
  10. PARACETAMOL [Concomitant]
     Indication: PRODUCT USED FOR UNKNOWN INDICATION

REACTIONS (2)
  - Deep vein thrombosis [Recovering/Resolving]
  - Pain in extremity [Unknown]
